FAERS Safety Report 19849535 (Version 4)
Quarter: 2022Q1

REPORT INFORMATION
  Report Type: Report from Study
  Country: NG (occurrence: NG)
  Receive Date: 20210918
  Receipt Date: 20220105
  Transmission Date: 20220423
  Serious: Yes (Death, Hospitalization, Other)
  Sender: FDA-Public Use
  Company Number: NG-NOVARTISPH-NVSC2021NG209027

PATIENT
  Age: 80 Year
  Sex: Female

DRUGS (1)
  1. SACUBITRIL\VALSARTAN [Suspect]
     Active Substance: SACUBITRIL\VALSARTAN
     Indication: Cardiac failure
     Dosage: 50 MG, BID
     Route: 048
     Dates: start: 202103

REACTIONS (5)
  - Death [Fatal]
  - Irregular breathing [Not Recovered/Not Resolved]
  - Cough [Not Recovered/Not Resolved]
  - Bowel movement irregularity [Recovering/Resolving]
  - Dyspepsia [Recovering/Resolving]

NARRATIVE: CASE EVENT DATE: 20210801
